FAERS Safety Report 10176421 (Version 2)
Quarter: 2014Q2

REPORT INFORMATION
  Report Type: Spontaneous
  Country: DE (occurrence: DE)
  Receive Date: 20140516
  Receipt Date: 20140516
  Transmission Date: 20141212
  Serious: Yes (Life-Threatening, Hospitalization)
  Sender: FDA-Public Use
  Company Number: DE-BAYER-2014-054375

PATIENT
  Age: 75 Year
  Sex: Male
  Weight: 83 kg

DRUGS (8)
  1. XARELTO [Suspect]
     Dosage: DAILY DOSE 20 MG
  2. ASS [Suspect]
     Indication: CORONARY ARTERY DISEASE
     Dosage: 100 MG, QD
  3. VALSARTAN [Concomitant]
     Indication: CORONARY ARTERY DISEASE
     Dosage: UNK; QD
  4. VALSARTAN [Concomitant]
     Indication: HYPERTENSION
  5. TORASEMID [Concomitant]
     Indication: CORONARY ARTERY DISEASE
     Dosage: UNK; QD
  6. TORASEMID [Concomitant]
     Indication: HYPERTENSION
  7. BISOPROLOL [Concomitant]
     Indication: CORONARY ARTERY DISEASE
     Dosage: UNK; QD
  8. BISOPROLOL [Concomitant]
     Indication: HYPERTENSION

REACTIONS (2)
  - Duodenal ulcer [None]
  - Upper gastrointestinal haemorrhage [None]
